FAERS Safety Report 4630487-0 (Version None)
Quarter: 2005Q2

REPORT INFORMATION
  Report Type: 
  Country: None (occurrence: None)
  Receive Date: 20050406
  Receipt Date: 20050323
  Transmission Date: 20051028
  Serious: Yes (Hospitalization)
  Sender: FDA-Public Use
  Company Number: USA050394055

PATIENT
  Age: 69 Year
  Sex: Female

DRUGS (5)
  1. FORTEO [Suspect]
  2. ESTROGENS CONJUGATED [Concomitant]
  3. PREDNISONE [Concomitant]
  4. VITAMIN D [Concomitant]
  5. CALCIUM GLUCONATE [Concomitant]

REACTIONS (7)
  - BACK PAIN [None]
  - CHRONIC OBSTRUCTIVE AIRWAYS DISEASE EXACERBATED [None]
  - CONDITION AGGRAVATED [None]
  - MULTIPLE FRACTURES [None]
  - SPINAL COMPRESSION FRACTURE [None]
  - SPINAL FRACTURE [None]
  - THERAPY NON-RESPONDER [None]
